FAERS Safety Report 4383847-X (Version None)
Quarter: 2004Q2

REPORT INFORMATION
  Report Type: 
  Country: None (occurrence: None)
  Receive Date: 20040615
  Receipt Date: 20031021
  Transmission Date: 20050107
  Serious: Yes (Other)
  Sender: FDA-Public Use
  Company Number: 2003US005571

PATIENT
  Age: 69 Year
  Sex: Male

DRUGS (2)
  1. PROGRAF [Suspect]
     Indication: RENAL TRANSPLANT
  2. CELLCEPT [Concomitant]

REACTIONS (3)
  - INFECTION IN AN IMMUNOCOMPROMISED HOST [None]
  - KIDNEY TRANSPLANT REJECTION [None]
  - VISION BLURRED [None]
